FAERS Safety Report 10464899 (Version 1)
Quarter: 2014Q3

REPORT INFORMATION
  Report Type: Spontaneous
  Country: US (occurrence: US)
  Receive Date: 20140919
  Receipt Date: 20140919
  Transmission Date: 20150326
  Serious: No
  Sender: FDA-Public Use
  Company Number: US-BAUSCH-SYM-2014-20073

PATIENT
  Sex: Female

DRUGS (1)
  1. ATRALIN [Suspect]
     Active Substance: TRETINOIN
     Indication: ACNE
     Dosage: APPLY AT BEDTIME
     Route: 061

REACTIONS (2)
  - Acne [Recovered/Resolved]
  - Product quality issue [Recovered/Resolved]
